FAERS Safety Report 9664906 (Version 1)
Quarter: 2013Q4

REPORT INFORMATION
  Report Type: Report from Study
  Country: US (occurrence: US)
  Receive Date: 20131101
  Receipt Date: 20131101
  Transmission Date: 20140711
  Serious: Yes (Hospitalization)
  Sender: FDA-Public Use
  Company Number: US-ABBVIE-13P-163-1161897-00

PATIENT
  Age: 49 Year
  Sex: Female

DRUGS (9)
  1. HUMIRA [Suspect]
     Indication: COLITIS ULCERATIVE
     Route: 058
     Dates: start: 20130724
  2. APRISO [Concomitant]
     Indication: COLITIS ULCERATIVE
  3. UNKNOWN INSULIN [Concomitant]
     Indication: DIABETES MELLITUS
  4. CANASA [Concomitant]
     Indication: COLITIS ULCERATIVE
  5. FUROSEMIDE [Concomitant]
     Indication: FLUID RETENTION
  6. JANUVIA [Concomitant]
     Indication: DIABETES MELLITUS
  7. METFORMIN [Concomitant]
     Indication: DIABETES MELLITUS
  8. METRONIDAZOLE [Concomitant]
     Indication: COLITIS ULCERATIVE
  9. UCERIS [Concomitant]
     Indication: COLITIS ULCERATIVE

REACTIONS (2)
  - Haematochezia [Recovered/Resolved]
  - Colitis ulcerative [Recovered/Resolved]
